FAERS Safety Report 14342757 (Version 1)
Quarter: 2018Q1

REPORT INFORMATION
  Report Type: Spontaneous
  Country: FI (occurrence: FI)
  Receive Date: 20180102
  Receipt Date: 20180102
  Transmission Date: 20180509
  Serious: Yes (Life-Threatening)
  Sender: FDA-Public Use
  Company Number: FI-ACTELION-A-CH2018-165151

PATIENT
  Age: 79 Year
  Sex: Female

DRUGS (8)
  1. MAREVAN [Concomitant]
     Active Substance: WARFARIN SODIUM
     Route: 048
  2. OPSUMIT [Suspect]
     Active Substance: MACITENTAN
     Indication: PULMONARY HYPERTENSION
     Dosage: 10 MG, QD
     Route: 048
     Dates: start: 20171013, end: 20171101
  3. HYPOLOC [Concomitant]
     Dosage: 5 MG, QD
     Route: 048
  4. REVATIO [Concomitant]
     Active Substance: SILDENAFIL CITRATE
     Dosage: UNK
     Route: 048
     Dates: start: 20171003
  5. DIGOXIN ORION [Concomitant]
     Dosage: 125 ?G, QD
     Route: 048
  6. JANUVIA [Concomitant]
     Active Substance: SITAGLIPTIN PHOSPHATE
     Dosage: 100 MG, QD
     Route: 048
  7. FURESIS [Concomitant]
     Active Substance: FUROSEMIDE
     Dosage: 80 G, QD
     Route: 048
  8. SPIRIX [Concomitant]
     Active Substance: SPIRONOLACTONE
     Dosage: 25 MG, QD
     Route: 048
     Dates: start: 20171003

REACTIONS (4)
  - Oedema [Recovered/Resolved]
  - Hyponatraemia [Recovered/Resolved]
  - Inappropriate antidiuretic hormone secretion [Recovered/Resolved]
  - Dyspnoea [Recovered/Resolved]

NARRATIVE: CASE EVENT DATE: 20171101
